FAERS Safety Report 6751864-8 (Version None)
Quarter: 2010Q2

REPORT INFORMATION
  Report Type: 
  Country: None (occurrence: None)
  Receive Date: 20100519
  Receipt Date: 20090803
  Transmission Date: 20101027
  Serious: Yes (Life-Threatening, Hospitalization)
  Sender: FDA-Public Use
  Company Number: 2009SP017411

PATIENT
  Sex: Female

DRUGS (1)
  1. FOLLISTIM AQ [Suspect]
     Indication: DRUG USE FOR UNKNOWN INDICATION
     Dosage: ; PARN

REACTIONS (1)
  - OVARIAN HYPERSTIMULATION SYNDROME [None]
